FAERS Safety Report 8388081-4 (Version None)
Quarter: 2012Q2

REPORT INFORMATION
  Report Type: 
  Country: None (occurrence: None)
  Receive Date: 20120525
  Receipt Date: 20120516
  Transmission Date: 20120825
  Serious: Yes (Hospitalization)
  Sender: FDA-Public Use
  Company Number: GB-ASTRAZENECA-2012SE31594

PATIENT
  Age: 76 Year
  Sex: Female
  Weight: 45.6 kg

DRUGS (10)
  1. VANDETANIB [Suspect]
     Indication: PANCREATIC CARCINOMA
     Route: 048
     Dates: start: 20120430, end: 20120508
  2. SPIRIVA [Concomitant]
     Indication: ASTHMA
     Route: 055
  3. FLUTICASONE PROPIONATE/SALMETEROL [Concomitant]
     Indication: ASTHMA
     Route: 055
  4. ORAMORPH SR [Concomitant]
     Indication: PAIN
     Route: 048
  5. SENNA-MINT WAF [Concomitant]
     Indication: CONSTIPATION
     Route: 048
     Dates: start: 20120509
  6. LANSOPRAZOLE [Concomitant]
     Indication: ANTACID THERAPY
     Route: 048
  7. BUPRENORPHINE [Concomitant]
     Indication: PAIN
     Route: 046
  8. ALBUTEROL [Concomitant]
     Indication: ASTHMA
     Route: 055
  9. GEMCITABINE [Suspect]
     Indication: PANCREATIC CARCINOMA
     Route: 042
     Dates: start: 20120430, end: 20120430
  10. ASPIRIN [Concomitant]
     Indication: ANTIPLATELET THERAPY
     Route: 048
     Dates: start: 20120509

REACTIONS (1)
  - ACUTE CORONARY SYNDROME [None]
